FAERS Safety Report 7459449-5 (Version None)
Quarter: 2011Q2

REPORT INFORMATION
  Report Type: 
  Country: None (occurrence: None)
  Receive Date: 20110505
  Receipt Date: 20110425
  Transmission Date: 20111010
  Serious: Yes (Other)
  Sender: FDA-Public Use
  Company Number: US-EISAI INC-E3810-04413-SPO-US

PATIENT
  Sex: Female
  Weight: 68 kg

DRUGS (4)
  1. MAXZIDE [Concomitant]
  2. ACIPHEX [Suspect]
     Route: 048
     Dates: start: 20080101
  3. ATENOLOL [Concomitant]
     Route: 048
  4. LEVOTHYROXINE SODIUM [Concomitant]
     Indication: HYPOTHYROIDISM
     Route: 048
     Dates: start: 19990101

REACTIONS (3)
  - ERUCTATION [None]
  - HEPATIC CYST [None]
  - HERNIA PAIN [None]
